FAERS Safety Report 14307355 (Version 1)
Quarter: 2017Q4

REPORT INFORMATION
  Report Type: Report from Study
  Country: IT (occurrence: IT)
  Receive Date: 20171220
  Receipt Date: 20171220
  Transmission Date: 20180321
  Serious: Yes (Death, Life-Threatening, Hospitalization)
  Sender: FDA-Public Use
  Company Number: IT-VIFOR (INTERNATIONAL) INC.-VIT-2017-12873

PATIENT
  Age: 90 Year
  Sex: Male
  Weight: 64 kg

DRUGS (8)
  1. ASA [Concomitant]
     Active Substance: ASPIRIN
     Dates: start: 20150926
  2. DIGOXIN. [Concomitant]
     Active Substance: DIGOXIN
     Dates: start: 20150402, end: 20151012
  3. CEFAZOLIN SODIUM. [Concomitant]
     Active Substance: CEFAZOLIN SODIUM
     Dosage: 1/2 AMPOULE
     Dates: start: 20150922
  4. FUROSEMIDE. [Concomitant]
     Active Substance: FUROSEMIDE
     Dates: start: 20040126
  5. ENOXAPARIN [Concomitant]
     Active Substance: ENOXAPARIN
     Dates: start: 20150922
  6. MIRCERA [Suspect]
     Active Substance: METHOXY POLYETHYLENE GLYCOL-EPOETIN BETA
     Route: 042
     Dates: start: 20151103
  7. MAGALDRATE [Concomitant]
     Active Substance: MAGALDRATE
     Dates: start: 20150210, end: 20151003
  8. MIRCERA [Suspect]
     Active Substance: METHOXY POLYETHYLENE GLYCOL-EPOETIN BETA
     Indication: NEPHROGENIC ANAEMIA
     Route: 042
     Dates: start: 20100630

REACTIONS (1)
  - Cardio-respiratory arrest [Fatal]

NARRATIVE: CASE EVENT DATE: 20151003
